FAERS Safety Report 7322250-7 (Version None)
Quarter: 2011Q1

REPORT INFORMATION
  Report Type: 
  Country: None (occurrence: None)
  Receive Date: 20110301
  Receipt Date: 20110214
  Transmission Date: 20110831
  Serious: No
  Sender: FDA-Public Use
  Company Number: US-BIOGENIDEC-2010BI011300

PATIENT
  Age: 46 Year
  Sex: Male

DRUGS (1)
  1. TYSABRI [Suspect]
     Indication: MULTIPLE SCLEROSIS
     Route: 042
     Dates: start: 20100108

REACTIONS (7)
  - PAIN IN EXTREMITY [None]
  - BACK PAIN [None]
  - VISION BLURRED [None]
  - ARTHRALGIA [None]
  - FATIGUE [None]
  - MEMORY IMPAIRMENT [None]
  - INSOMNIA [None]
